FAERS Safety Report 25277639 (Version 1)
Quarter: 2025Q2

REPORT INFORMATION
  Report Type: Report from Study
  Country: PK (occurrence: PK)
  Receive Date: 20250507
  Receipt Date: 20250507
  Transmission Date: 20250717
  Serious: Yes (Death)
  Sender: ROCHE
  Company Number: PK-ROCHE-10000270171

PATIENT
  Age: 61 Year
  Sex: Male

DRUGS (1)
  1. GAZYVA [Suspect]
     Active Substance: OBINUTUZUMAB
     Indication: Follicular lymphoma
     Route: 042
     Dates: start: 20250304

REACTIONS (4)
  - Follicular lymphoma [Fatal]
  - Oedema [Fatal]
  - Pulmonary oedema [Fatal]
  - Neutropenia [Fatal]
